FAERS Safety Report 9187257 (Version 1)
Quarter: 2013Q1

REPORT INFORMATION
  Report Type: Spontaneous
  Country: US (occurrence: US)
  Receive Date: 20130325
  Receipt Date: 20130325
  Transmission Date: 20140127
  Serious: Yes (Hospitalization, Other)
  Sender: FDA-Public Use
  Company Number: US-PFIZER INC-2013096357

PATIENT
  Age: 63 Year
  Sex: Male
  Weight: 87.98 kg

DRUGS (2)
  1. CELEBREX [Suspect]
     Indication: ARTHRITIS
     Dosage: 200 MG, 1X/DAY
  2. TYLENOL [Suspect]
     Indication: ARTHRITIS
     Dosage: UNK

REACTIONS (5)
  - Renal failure acute [Recovered/Resolved]
  - Pain [Unknown]
  - Glaucoma [Unknown]
  - Drug ineffective [Unknown]
  - Malaise [Unknown]
